FAERS Safety Report 19477329 (Version 2)
Quarter: 2021Q3

REPORT INFORMATION
  Report Type: Spontaneous
  Country: NL (occurrence: DE)
  Receive Date: 20210630
  Receipt Date: 20210707
  Transmission Date: 20211014
  Serious: Yes (Death, Life-Threatening, Hospitalization, Other)
  Sender: FDA-Public Use
  Company Number: DE-FRESENIUS KABI-FK202106406

PATIENT
  Age: 55 Year
  Sex: Female
  Weight: 70 kg

DRUGS (5)
  1. MEROPENEM. [Concomitant]
     Active Substance: MEROPENEM
     Indication: DECUBITUS ULCER
     Dosage: UNK
     Route: 065
     Dates: start: 20201210, end: 20201220
  2. MEROPENEM. [Concomitant]
     Active Substance: MEROPENEM
     Indication: NECROTISING FASCIITIS
     Dosage: UNK
     Dates: start: 20210309, end: 20210310
  3. CLINDAMYCIN. [Concomitant]
     Active Substance: CLINDAMYCIN
     Indication: STAPHYLOCOCCAL BACTERAEMIA
     Dosage: 900 MG THRICE DAILY (1?1?1)
     Route: 065
     Dates: start: 20210122, end: 20210128
  4. LINEZOLID (MANUFACTURER UNKNOWN) [Suspect]
     Active Substance: LINEZOLID
     Indication: OSTEOMYELITIS
     Dosage: 600 MG TWICE DAILY (1?0?1)
     Route: 048
     Dates: start: 20210128, end: 20210309
  5. LINEZOLID (MANUFACTURER UNKNOWN) [Suspect]
     Active Substance: LINEZOLID
     Indication: ENTEROCOCCAL INFECTION
     Dosage: UNK
     Route: 065

REACTIONS (10)
  - Multiple organ dysfunction syndrome [Fatal]
  - Metabolic acidosis [Fatal]
  - Circulatory collapse [Fatal]
  - Renal failure [Fatal]
  - Thrombocytopenia [Fatal]
  - Oliguria [Fatal]
  - Sepsis [Fatal]
  - Respiratory failure [Fatal]
  - Lactic acidosis [Fatal]
  - Anaemia [Fatal]

NARRATIVE: CASE EVENT DATE: 2021
